FAERS Safety Report 25058094 (Version 1)
Quarter: 2025Q1

REPORT INFORMATION
  Report Type: Spontaneous
  Country: US (occurrence: None)
  Receive Date: 20250309
  Receipt Date: 20250309
  Transmission Date: 20250408
  Serious: No
  Sender: FDA-CTU
  Company Number: None

PATIENT
  Age: 44 Year
  Sex: Female
  Weight: 139.05 kg

DRUGS (17)
  1. MOUNJARO [Suspect]
     Active Substance: TIRZEPATIDE
     Indication: Type 2 diabetes mellitus
     Route: 058
     Dates: start: 20250217
  2. OZEMPIC [Concomitant]
     Active Substance: SEMAGLUTIDE
  3. SYNTHROID [Concomitant]
     Active Substance: LEVOTHYROXINE SODIUM
  4. TRIAMTERENE AND HYDROCHLOROTHIAZIDE [Concomitant]
     Active Substance: HYDROCHLOROTHIAZIDE\TRIAMTERENE
  5. LOSARTAN [Concomitant]
     Active Substance: LOSARTAN
  6. FLUOXETINE [Concomitant]
     Active Substance: FLUOXETINE HYDROCHLORIDE
  7. FUROSEMIDE [Concomitant]
     Active Substance: FUROSEMIDE
  8. SINGULAIR [Concomitant]
     Active Substance: MONTELUKAST SODIUM
  9. ATORVASTATIN [Concomitant]
     Active Substance: ATORVASTATIN
  10. FLONASE [Concomitant]
     Active Substance: FLUTICASONE PROPIONATE
  11. VITAMIN D [Concomitant]
     Active Substance: VITAMIN D NOS
  12. COENZYME Q10 [Concomitant]
     Active Substance: DIETARY SUPPLEMENT\UBIDECARENONE
  13. FIBER THERAPY (CALCIUM POLYCARBOPHIL) [Concomitant]
     Active Substance: CALCIUM POLYCARBOPHIL
  14. VITAMINS [Concomitant]
     Active Substance: VITAMINS
  15. HERBALS\TURMERIC [Concomitant]
     Active Substance: HERBALS\TURMERIC
  16. TUMS [Concomitant]
     Active Substance: CALCIUM CARBONATE
  17. LORATADINE [Suspect]
     Active Substance: LORATADINE

REACTIONS (6)
  - Hypoglycaemia [None]
  - Myalgia [None]
  - Musculoskeletal stiffness [None]
  - Therapeutic product effect decreased [None]
  - Back pain [None]
  - Neck pain [None]

NARRATIVE: CASE EVENT DATE: 20250217
